FAERS Safety Report 26192422 (Version 1)
Quarter: 2025Q4

REPORT INFORMATION
  Report Type: Spontaneous
  Country: US (occurrence: US)
  Receive Date: 20251223
  Receipt Date: 20251223
  Transmission Date: 20260117
  Serious: Yes (Other)
  Sender: AMGEN
  Company Number: US-AMGEN-USASP2025251732

PATIENT
  Age: 81 Year
  Sex: Female

DRUGS (1)
  1. PROLIA [Suspect]
     Active Substance: DENOSUMAB
     Indication: Product used for unknown indication
     Dosage: UNK
     Route: 065
     Dates: start: 20251119, end: 202512

REACTIONS (5)
  - Arthralgia [Not Recovered/Not Resolved]
  - Myalgia [Not Recovered/Not Resolved]
  - Rash pruritic [Not Recovered/Not Resolved]
  - Fatigue [Not Recovered/Not Resolved]
  - Bone pain [Not Recovered/Not Resolved]

NARRATIVE: CASE EVENT DATE: 20251101
